FAERS Safety Report 10061063 (Version 1)
Quarter: 2014Q2

REPORT INFORMATION
  Report Type: Report from Study
  Country: DE (occurrence: DE)
  Receive Date: 20140405
  Receipt Date: 20140405
  Transmission Date: 20141212
  Serious: Yes (Hospitalization)
  Sender: FDA-Public Use
  Company Number: DE-TEVA-473577GER

PATIENT
  Age: 62 Year
  Sex: Female
  Weight: 87 kg

DRUGS (2)
  1. GEMCITABIN-GRY 1000 MG [Suspect]
     Indication: BREAST CANCER FEMALE
     Route: 042
     Dates: start: 20140117, end: 20140328
  2. ABRAXANE [Suspect]
     Indication: BREAST CANCER FEMALE
     Route: 042
     Dates: start: 20140117

REACTIONS (1)
  - Dysarthria [Unknown]
